FAERS Safety Report 5340604-5 (Version None)
Quarter: 2007Q2

REPORT INFORMATION
  Report Type: 
  Country: None (occurrence: None)
  Receive Date: 20070531
  Receipt Date: 20070521
  Transmission Date: 20071010
  Serious: Yes (Other)
  Sender: FDA-Public Use
  Company Number: US-PFIZER INC-2007041120

PATIENT
  Sex: Female
  Weight: 43.636 kg

DRUGS (9)
  1. LIPITOR [Suspect]
     Indication: BLOOD CHOLESTEROL INCREASED
  2. CHANTIX [Suspect]
     Indication: SMOKING CESSATION THERAPY
     Dosage: FREQ:DAILY
  3. LORAZEPAM [Concomitant]
  4. PREVACID [Concomitant]
  5. PENTOXIFYLLINE [Concomitant]
  6. LIBRAX [Concomitant]
  7. MIRALAX [Concomitant]
  8. ACETYLSALICYLIC ACID SRT [Concomitant]
  9. MINERAL OIL [Concomitant]

REACTIONS (8)
  - ARTERIAL OCCLUSIVE DISEASE [None]
  - BRONCHITIS [None]
  - DYSGEUSIA [None]
  - EMPHYSEMA [None]
  - MUSCLE ATROPHY [None]
  - MYOCARDIAL INFARCTION [None]
  - NAUSEA [None]
  - VOMITING [None]
